FAERS Safety Report 18256414 (Version 1)
Quarter: 2020Q3

REPORT INFORMATION
  Report Type: Spontaneous
  Country: US (occurrence: US)
  Receive Date: 20200911
  Receipt Date: 20200911
  Transmission Date: 20201103
  Serious: No
  Sender: FDA-Public Use
  Company Number: US-SUN PHARMACEUTICAL INDUSTRIES LTD-2020R1-251520

PATIENT
  Sex: Male
  Weight: 81 kg

DRUGS (1)
  1. TAMSULOSIN [Suspect]
     Active Substance: TAMSULOSIN
     Indication: URINARY TRACT INFECTION
     Dosage: 0.4 MILLIGRAM, QD
     Route: 048
     Dates: start: 202006

REACTIONS (1)
  - Drug ineffective [Unknown]
